FAERS Safety Report 9491268 (Version 1)
Quarter: 2013Q3

REPORT INFORMATION
  Report Type: Spontaneous
  Country: FR (occurrence: FR)
  Receive Date: 20130830
  Receipt Date: 20130830
  Transmission Date: 20140515
  Serious: Yes (Hospitalization, Other)
  Sender: FDA-Public Use
  Company Number: FR-PFIZER INC-2013246618

PATIENT
  Age: 64 Year
  Sex: Female

DRUGS (11)
  1. INSPRA [Suspect]
     Dosage: 25 MG, UNK
     Route: 048
     Dates: start: 201305, end: 20130726
  2. TRIATEC [Suspect]
     Indication: CARDIAC FAILURE
     Dosage: 5 MG DAILY
     Route: 048
     Dates: start: 201305, end: 20130714
  3. TRIATEC [Suspect]
     Dosage: 7.5 MG, DAILY
     Route: 048
     Dates: start: 20130715, end: 20130726
  4. LASILIX [Suspect]
     Dosage: 20 MG, DAILY
     Route: 048
     Dates: start: 201305, end: 20130726
  5. KARDEGIC [Concomitant]
     Dosage: UNK
     Dates: start: 201305
  6. BRILIQUE [Concomitant]
     Dosage: UNK
     Dates: start: 201305
  7. BISOPROLOL [Concomitant]
     Dosage: UNK
     Dates: start: 201305
  8. TAHOR [Concomitant]
     Dosage: UNK
     Dates: start: 201305
  9. MOPRAL [Concomitant]
     Dosage: UNK
     Dates: start: 201305
  10. DIFFU K [Concomitant]
     Dosage: UNK
     Dates: start: 201305, end: 20130715
  11. GLUCOR [Concomitant]
     Dosage: UNK
     Dates: start: 20130702

REACTIONS (2)
  - Renal failure acute [Recovered/Resolved]
  - Toxic skin eruption [Unknown]
